FAERS Safety Report 22261621 (Version 2)
Quarter: 2023Q2

REPORT INFORMATION
  Report Type: Spontaneous
  Country: JP (occurrence: JP)
  Receive Date: 20230427
  Receipt Date: 20230602
  Transmission Date: 20230722
  Serious: Yes (Hospitalization, Other)
  Sender: FDA-Public Use
  Company Number: JP-BAYER-2023A051151

PATIENT
  Age: 73 Year
  Sex: Male

DRUGS (1)
  1. NUBEQA [Suspect]
     Active Substance: DAROLUTAMIDE
     Indication: Prostate cancer metastatic
     Dosage: DAILY DOSE 1200MG
     Route: 048
     Dates: start: 20230412, end: 20230417

REACTIONS (4)
  - Prostate cancer metastatic [None]
  - Myelofibrosis [None]
  - Myelosuppression [Recovering/Resolving]
  - Malaise [None]

NARRATIVE: CASE EVENT DATE: 20230417
